FAERS Safety Report 5510223-6 (Version None)
Quarter: 2007Q4

REPORT INFORMATION
  Report Type: 
  Country: None (occurrence: None)
  Receive Date: 20071108
  Receipt Date: 20071031
  Transmission Date: 20080405
  Serious: Yes (Hospitalization, Other)
  Sender: FDA-Public Use
  Company Number: US-ROCHE-429993

PATIENT
  Age: 25 Year
  Sex: Female
  Weight: 59 kg

DRUGS (13)
  1. ACCUTANE [Suspect]
     Indication: ACNE
     Route: 048
     Dates: start: 19970301, end: 19970415
  2. ACCUTANE [Suspect]
     Route: 048
     Dates: start: 19970416, end: 19970506
  3. ACCUTANE [Suspect]
     Route: 048
     Dates: start: 19970507, end: 19980101
  4. ACCUTANE [Suspect]
     Route: 048
     Dates: start: 19980623, end: 19980913
  5. ACCUTANE [Suspect]
     Route: 048
     Dates: start: 19980914
  6. ACCUTANE [Suspect]
     Route: 048
     Dates: start: 19990407, end: 19990901
  7. ACCUTANE [Suspect]
     Route: 048
     Dates: start: 19991119, end: 20000714
  8. ACCUTANE [Suspect]
     Route: 048
     Dates: start: 20000715, end: 20001005
  9. ACCUTANE [Suspect]
     Route: 048
     Dates: start: 20010405, end: 20010716
  10. ACCUTANE [Suspect]
     Route: 048
     Dates: start: 20010814, end: 20011204
  11. FLUTICASONE PROPIONATE [Concomitant]
     Indication: ASTHMA
     Route: 055
  12. SEREVENT [Concomitant]
     Indication: ASTHMA
     Route: 055
  13. LO/OVRAL [Concomitant]

REACTIONS (13)
  - AGGRESSION [None]
  - AGORAPHOBIA [None]
  - ANXIETY [None]
  - CHOLECYSTECTOMY [None]
  - COLITIS [None]
  - DEPRESSION [None]
  - EPSTEIN-BARR VIRUS INFECTION [None]
  - INFLAMMATORY BOWEL DISEASE [None]
  - MOOD ALTERED [None]
  - NIGHT BLINDNESS [None]
  - PANCREATITIS [None]
  - PANIC ATTACK [None]
  - PSYCHOTIC DISORDER [None]
